FAERS Safety Report 22971670 (Version 3)
Quarter: 2023Q4

REPORT INFORMATION
  Report Type: Report from Study
  Country: BR (occurrence: BR)
  Receive Date: 20230922
  Receipt Date: 20231128
  Transmission Date: 20240110
  Serious: Yes (Hospitalization, Other)
  Sender: FDA-Public Use
  Company Number: BR-BAYER-2023A129248

PATIENT
  Age: 53 Year
  Sex: Female

DRUGS (11)
  1. NEXAVAR [Suspect]
     Active Substance: SORAFENIB
     Indication: Metastases to liver
     Dosage: 400 MG DAILY
     Dates: start: 202307
  2. NEXAVAR [Suspect]
     Active Substance: SORAFENIB
     Indication: Neoplasm malignant
     Dosage: 800 MG DAILY
  3. NEXAVAR [Suspect]
     Active Substance: SORAFENIB
     Indication: Metastases to liver
     Dosage: 400 MG DAILY
  4. NEXAVAR [Suspect]
     Active Substance: SORAFENIB
     Indication: Metastases to liver
     Dosage: 400 MG DAILY
  5. NEXAVAR [Suspect]
     Active Substance: SORAFENIB
     Indication: Metastases to liver
     Dosage: 400 MG, BID
  6. HERBALS [Concomitant]
     Active Substance: HERBALS
     Dosage: UNK
  7. SAFFRON [Concomitant]
     Active Substance: SAFFRON
     Dosage: UNK
  8. YAM [POTASSIUM BROMIDE;SODIUM CHLORIDE;ZINC SULFATE] [Concomitant]
     Dosage: UNK
  9. HERBALS\TURMERIC [Concomitant]
     Active Substance: HERBALS\TURMERIC
     Dosage: UNK
  10. GARLIC [Concomitant]
     Active Substance: GARLIC
     Dosage: 2 CLOVES
  11. HONEY C FOR IMMUNITY [Concomitant]
     Dosage: UNK

REACTIONS (26)
  - Pain [None]
  - Leukopenia [None]
  - Mobility decreased [None]
  - Immunodeficiency [None]
  - Gait inability [None]
  - Blister infected [None]
  - Hepatomegaly [None]
  - Nausea [None]
  - Fatigue [None]
  - Miliaria [None]
  - Bladder pain [None]
  - Pruritus [None]
  - Dry mouth [None]
  - Hyperhidrosis [None]
  - Weight increased [None]
  - Anxiety [None]
  - Illness [None]
  - Asthenia [None]
  - Abdominal distension [None]
  - Abdominal pain upper [None]
  - Ear pruritus [None]
  - Depression [None]
  - Rash [None]
  - Off label use [None]
  - Peripheral swelling [None]
  - Sensitive skin [Not Recovered/Not Resolved]

NARRATIVE: CASE EVENT DATE: 20230901
